FAERS Safety Report 9007060 (Version 1)
Quarter: 2013Q1

REPORT INFORMATION
  Report Type: Spontaneous
  Country: US (occurrence: US)
  Receive Date: 20130110
  Receipt Date: 20130110
  Transmission Date: 20140127
  Serious: Yes (Death)
  Sender: FDA-Public Use
  Company Number: US-PFIZER INC-2013007103

PATIENT
  Sex: 0

DRUGS (3)
  1. OXYCODONE HYDROCHLORIDE [Suspect]
  2. OXYMORPHONE [Suspect]
  3. HYDROCODONE [Suspect]

REACTIONS (1)
  - Death [Fatal]
